FAERS Safety Report 8327014-3 (Version None)
Quarter: 2012Q2

REPORT INFORMATION
  Report Type: 
  Country: None (occurrence: None)
  Receive Date: 20120501
  Receipt Date: 20120417
  Transmission Date: 20120825
  Serious: Yes (Other)
  Sender: FDA-Public Use
  Company Number: US-ROCHE-1060441

PATIENT
  Age: 63 Year
  Sex: Male

DRUGS (1)
  1. XELODA [Suspect]
     Indication: COLORECTAL CANCER METASTATIC
     Route: 048
     Dates: start: 20110401, end: 20120301

REACTIONS (6)
  - CARDIAC STRESS TEST ABNORMAL [None]
  - LABORATORY TEST ABNORMAL [None]
  - COUGH [None]
  - CREATININE RENAL CLEARANCE ABNORMAL [None]
  - BRAIN NEOPLASM [None]
  - TUMOUR EXCISION [None]
